FAERS Safety Report 5265554-4 (Version None)
Quarter: 2007Q1

REPORT INFORMATION
  Report Type: 
  Country: None (occurrence: None)
  Receive Date: 20070314
  Receipt Date: 20070309
  Transmission Date: 20070707
  Serious: Yes (Other)
  Sender: FDA-Public Use
  Company Number: US-MERCK-0701USA01202

PATIENT
  Age: 76 Year
  Sex: Male
  Weight: 83 kg

DRUGS (7)
  1. JANUVIA [Suspect]
     Indication: DIABETES MELLITUS NON-INSULIN-DEPENDENT
     Route: 048
     Dates: start: 20061214
  2. GLUCOPHAGE XR [Concomitant]
     Indication: DIABETES MELLITUS NON-INSULIN-DEPENDENT
     Route: 048
     Dates: start: 20020901
  3. HYZAAR [Concomitant]
     Indication: HYPERTENSION
     Route: 048
     Dates: start: 20050101
  4. LIPITOR [Concomitant]
     Indication: LIPIDS INCREASED
     Route: 048
     Dates: start: 19970601
  5. LEXAPRO [Concomitant]
     Indication: DEPRESSION
     Route: 048
     Dates: start: 20051101
  6. LEXAPRO [Concomitant]
     Indication: ANXIETY
     Route: 048
     Dates: start: 20051101
  7. AGGRENOX [Concomitant]
     Indication: CEREBROVASCULAR ACCIDENT PROPHYLAXIS
     Route: 048
     Dates: start: 20030801

REACTIONS (1)
  - CONVULSION [None]
